FAERS Safety Report 8506697-9 (Version None)
Quarter: 2012Q3

REPORT INFORMATION
  Report Type: 
  Country: None (occurrence: None)
  Receive Date: 20120712
  Receipt Date: 20120709
  Transmission Date: 20120928
  Serious: Yes (Death, Disabling, Other)
  Sender: FDA-Public Use
  Company Number: US-MILLENNIUM PHARMACEUTICALS, INC.-2012-04813

PATIENT
  Sex: Female

DRUGS (5)
  1. AREDIA [Concomitant]
     Indication: OSTEOPOROSIS
     Dosage: 60 MG, UNK
     Dates: start: 20090401
  2. VELCADE [Suspect]
     Indication: PRODUCT USED FOR UNKNOWN INDICATION
     Dosage: 2.4 MG, UNK
     Route: 042
     Dates: start: 20091201, end: 20100901
  3. REVLIMID [Suspect]
     Indication: MULTIPLE MYELOMA
     Dosage: 25 MG, QD
     Route: 048
     Dates: start: 20090401, end: 20101201
  4. REVLIMID [Suspect]
     Dosage: 25 MG, QD
     Route: 048
     Dates: start: 20110101, end: 20110301
  5. DEXAMETHASONE SODIUM POSPHATE [Concomitant]
     Indication: PRODUCT USED FOR UNKNOWN INDICATION
     Dosage: 40 MG, 1/WEEK
     Dates: start: 20090401, end: 20101101

REACTIONS (5)
  - DEATH [None]
  - FATIGUE [None]
  - DIARRHOEA [None]
  - COLITIS MICROSCOPIC [None]
  - NEUROPATHY PERIPHERAL [None]
